FAERS Safety Report 5608798-1 (Version None)
Quarter: 2008Q1

REPORT INFORMATION
  Report Type: 
  Country: None (occurrence: None)
  Receive Date: 20080131
  Receipt Date: 20080130
  Transmission Date: 20080703
  Serious: Yes (Death)
  Sender: FDA-Public Use
  Company Number: UA-BRISTOL-MYERS SQUIBB COMPANY-14058846

PATIENT
  Age: 47 Year
  Sex: Male

DRUGS (3)
  1. CDDP [Suspect]
     Indication: GASTRIC CANCER
     Route: 041
     Dates: start: 20060713, end: 20060713
  2. FLUOROURACIL [Suspect]
     Indication: GASTRIC CANCER
     Dosage: FREQUENCY: DAY 1-5 EVERY 28 DAYS
     Route: 041
     Dates: start: 20060713, end: 20060718
  3. KETANOV [Concomitant]
     Indication: ABDOMINAL PAIN UPPER
     Route: 048
     Dates: start: 20060601, end: 20060718

REACTIONS (1)
  - TUMOUR LYSIS SYNDROME [None]
